FAERS Safety Report 18406902 (Version 3)
Quarter: 2020Q4

REPORT INFORMATION
  Report Type: Other
  Country: PT (occurrence: PT)
  Receive Date: 20201020
  Receipt Date: 20201128
  Transmission Date: 20210114
  Serious: Yes (Hospitalization)
  Sender: FDA-Public Use
  Company Number: PT-NEUROCRINE BIOSCIENCES INC.-2020NBI03798

PATIENT
  Age: 69 Year
  Sex: Female

DRUGS (5)
  1. CLOXAZOLAM [Suspect]
     Active Substance: CLOXAZOLAM
     Indication: PARKINSON^S DISEASE
     Dosage: UNKNOWN
     Route: 065
  2. OPICAPONE [Suspect]
     Active Substance: OPICAPONE
     Indication: PARKINSON^S DISEASE
     Route: 065
  3. AMANTADINE. [Suspect]
     Active Substance: AMANTADINE HYDROCHLORIDE
     Route: 065
  4. SINEMET [Suspect]
     Active Substance: CARBIDOPA\LEVODOPA
     Indication: PARKINSON^S DISEASE
     Dosage: 25+100 MG, 4X / DAY
     Route: 048
  5. AMANTADINE. [Suspect]
     Active Substance: AMANTADINE HYDROCHLORIDE
     Indication: PARKINSON^S DISEASE
     Route: 065

REACTIONS (7)
  - Drug withdrawal syndrome [Unknown]
  - Hyperthermia [Unknown]
  - Treatment noncompliance [Unknown]
  - Dyskinesia [Unknown]
  - Therapy cessation [Unknown]
  - Overdose [Unknown]
  - Food refusal [Unknown]
